FAERS Safety Report 17445922 (Version 3)
Quarter: 2020Q4

REPORT INFORMATION
  Report Type: Report from Study
  Country: DE (occurrence: DE)
  Receive Date: 20200221
  Receipt Date: 20201203
  Transmission Date: 20210113
  Serious: Yes (Hospitalization, Other)
  Sender: FDA-Public Use
  Company Number: DE-PFIZER INC-2020071078

PATIENT
  Age: 70 Year
  Sex: Male
  Weight: 80.7 kg

DRUGS (12)
  1. ESBRIET [Suspect]
     Active Substance: PIRFENIDONE
     Indication: IDIOPATHIC PULMONARY FIBROSIS
     Dosage: 801 MG, 1X/DAY
     Route: 048
     Dates: start: 20180109
  2. SILDENAFIL CITRATE. [Suspect]
     Active Substance: SILDENAFIL CITRATE
     Indication: PRODUCT USED FOR UNKNOWN INDICATION
     Dosage: 60 MG, 1X/DAY
     Route: 065
  3. ALENDRONIC ACID [Concomitant]
     Active Substance: ALENDRONIC ACID
     Dosage: 70 MG, WEEKLY
     Route: 065
  4. L-THYROXIN [LEVOTHYROXINE] [Concomitant]
     Active Substance: LEVOTHYROXINE SODIUM
     Dosage: 125 UG, 1X/DAY(1-0-0)
  5. CALCIMAGON D3 [Concomitant]
     Active Substance: CALCIUM\CHOLECALCIFEROL
  6. PANTOPRAZOL [PANTOPRAZOLE] [Concomitant]
     Active Substance: PANTOPRAZOLE
     Dosage: 40 MG
     Route: 065
  7. TORASEMID [Concomitant]
     Active Substance: TORSEMIDE
  8. ESBRIET [Suspect]
     Active Substance: PIRFENIDONE
     Dosage: 801 MG, 1X/DAY
     Route: 048
     Dates: start: 20151219
  9. CORTISONE [Concomitant]
     Active Substance: CORTISONE
     Dosage: 8 MG
     Route: 065
  10. CANDECOR [Concomitant]
     Active Substance: CANDESARTAN CILEXETIL
     Dosage: 8 MG
     Route: 065
  11. CORTISONE [Concomitant]
     Active Substance: CORTISONE
     Dosage: 100 MG, 1X/DAY
     Route: 065
  12. HCTZ [Concomitant]
     Active Substance: HYDROCHLOROTHIAZIDE

REACTIONS (39)
  - Thoracic vertebral fracture [Recovered/Resolved]
  - Fatigue [Not Recovered/Not Resolved]
  - Gastric infection [Recovered/Resolved]
  - Chills [Recovered/Resolved]
  - Lip swelling [Unknown]
  - Dizziness [Recovering/Resolving]
  - Skin exfoliation [Not Recovered/Not Resolved]
  - Pruritus [Not Recovered/Not Resolved]
  - Tooth fracture [Recovered/Resolved]
  - Ageusia [Not Recovered/Not Resolved]
  - Pain in extremity [Recovered/Resolved]
  - Cough [Recovering/Resolving]
  - Seasonal allergy [Not Recovered/Not Resolved]
  - Arthralgia [Not Recovered/Not Resolved]
  - Pulmonary hypertension [Unknown]
  - Tension [Not Recovered/Not Resolved]
  - Diarrhoea [Recovered/Resolved]
  - Fall [Unknown]
  - Osteoarthritis [Not Recovered/Not Resolved]
  - Pyrexia [Recovered/Resolved]
  - Oral discomfort [Not Recovered/Not Resolved]
  - Dyspepsia [Recovering/Resolving]
  - Loss of consciousness [Recovered/Resolved]
  - Malaise [Recovering/Resolving]
  - Nausea [Not Recovered/Not Resolved]
  - Respiratory tract infection [Recovered/Resolved]
  - Infection [Recovered/Resolved]
  - Back pain [Not Recovered/Not Resolved]
  - Pyrexia [Not Recovered/Not Resolved]
  - Hypotension [Recovered/Resolved]
  - Infection [Recovered/Resolved]
  - Exfoliative rash [Not Recovered/Not Resolved]
  - Cognitive disorder [Not Recovered/Not Resolved]
  - Skin cancer [Unknown]
  - Arthralgia [Recovered/Resolved]
  - C-reactive protein increased [Recovered/Resolved]
  - Myalgia [Not Recovered/Not Resolved]
  - Dyspnoea [Not Recovered/Not Resolved]
  - Dyspepsia [Recovered/Resolved]

NARRATIVE: CASE EVENT DATE: 20151219
